FAERS Safety Report 9888086 (Version 2)
Quarter: 2014Q2

REPORT INFORMATION
  Report Type: Spontaneous
  Country: FR (occurrence: FR)
  Receive Date: 20140211
  Receipt Date: 20140611
  Transmission Date: 20141212
  Serious: Yes (Hospitalization)
  Sender: FDA-Public Use
  Company Number: FR-ELI_LILLY_AND_COMPANY-FR201401011610

PATIENT
  Age: 45 Year
  Sex: Male

DRUGS (2)
  1. ZYPADHERA [Suspect]
     Indication: PRODUCT USED FOR UNKNOWN INDICATION
     Dosage: 405 MG, MONTHLY (1/M)
     Route: 030
     Dates: start: 2012
  2. HALDOL DECANOAS [Concomitant]
     Dosage: 200 MG, MONTHLY (1/M)

REACTIONS (8)
  - Vertigo [Unknown]
  - Muscle contracture [Unknown]
  - Somnolence [Unknown]
  - Speech disorder [Unknown]
  - Blood pressure increased [Unknown]
  - Aggression [Unknown]
  - Tachycardia [Unknown]
  - Confusional state [Unknown]
